FAERS Safety Report 10682225 (Version 1)
Quarter: 2014Q4

REPORT INFORMATION
  Report Type: Spontaneous
  Country: US (occurrence: None)
  Receive Date: 20141229
  Receipt Date: 20141229
  Transmission Date: 20150529
  Serious: Yes (Disabling)
  Sender: FDA-Public Use
  Company Number: None

PATIENT
  Age: 38 Year
  Sex: Female
  Weight: 75.3 kg

DRUGS (1)
  1. MYRBETRIQ [Suspect]
     Active Substance: MIRABEGRON
     Indication: HYPERTONIC BLADDER
     Dosage: 1 TABLET
     Route: 048
     Dates: start: 20130514, end: 20140916

REACTIONS (8)
  - Lacrimation decreased [None]
  - Discomfort [None]
  - Eyelid disorder [None]
  - Meibomian gland dysfunction [None]
  - Economic problem [None]
  - Dry eye [None]
  - Quality of life decreased [None]
  - Suicidal ideation [None]

NARRATIVE: CASE EVENT DATE: 20140416
